FAERS Safety Report 7333534 (Version 3)
Quarter: 2020Q3

REPORT INFORMATION
  Report Type: Report from Study
  Country: DE (occurrence: DE)
  Receive Date: 20100326
  Receipt Date: 20100706
  Transmission Date: 20201104
  Serious: Yes (Hospitalization)
  Sender: FDA-Public Use
  Company Number: DE-WYE-H14236110

PATIENT
  Age: 78 Year
  Sex: Male
  Weight: 72.5 kg

DRUGS (7)
  1. METOPROLOL. [Concomitant]
     Active Substance: METOPROLOL
     Indication: HYPERTENSION
     Dosage: NOT PROVIDED
     Route: 065
     Dates: start: 2001
  2. METIPRANOLOL HYDROCHLORIDE [Concomitant]
     Active Substance: METIPRANOLOL HYDROCHLORIDE
     Indication: GLAUCOMA
     Dosage: NOT PROVIDED
     Route: 047
     Dates: start: 1978
  3. ACETYLSALICYLIC ACID [Concomitant]
     Active Substance: ASPIRIN
     Indication: THROMBOSIS PROPHYLAXIS
     Dosage: NOT PROVIDED
     Route: 065
     Dates: start: 20091007
  4. ROFERON?A [Suspect]
     Active Substance: INTERFERON ALFA-2A
     Indication: RENAL CELL CARCINOMA
     Dosage: 6 MILL. I E 3 X/ WEEK
     Route: 058
     Dates: start: 20090701
  5. BRINZOLAMIDE [Concomitant]
     Active Substance: BRINZOLAMIDE
     Indication: GLAUCOMA
     Dosage: NOT PROVIDED
     Route: 047
     Dates: start: 20091001
  6. BEVACIZUMAB. [Suspect]
     Active Substance: BEVACIZUMAB
     Indication: RENAL CELL CARCINOMA
     Dosage: NOT PROVIDED
     Route: 042
  7. ACETYLCYSTEINE. [Concomitant]
     Active Substance: ACETYLCYSTEINE
     Dosage: NOT PROVIDED
     Route: 065
     Dates: start: 200902

REACTIONS (1)
  - Circulatory collapse [Recovered/Resolved]

NARRATIVE: CASE EVENT DATE: 20100318
